FAERS Safety Report 5111621-5 (Version None)
Quarter: 2006Q3

REPORT INFORMATION
  Report Type: 
  Country: None (occurrence: None)
  Receive Date: 20060922
  Receipt Date: 20060908
  Transmission Date: 20061208
  Serious: Yes (Death, Hospitalization)
  Sender: FDA-Public Use
  Company Number: PHRM2006FR02497

PATIENT
  Age: 7 Year
  Sex: Male

DRUGS (11)
  1. CORTANCYL [Concomitant]
  2. FERROSTRANE [Concomitant]
  3. FONCITRIL 4000 [Concomitant]
  4. FUCIDINE CAP [Concomitant]
  5. ESOMEPRAZOLE MAGNESIUM [Concomitant]
  6. BACTRIM [Concomitant]
  7. DOLIPRANE [Concomitant]
  8. TACROLIMUS [Concomitant]
     Indication: DERMATOMYOSITIS
     Dates: start: 20060522
  9. AREDIA [Suspect]
     Indication: DERMATOMYOSITIS
     Dosage: UNK, UNK
     Route: 042
     Dates: start: 20060503, end: 20060505
  10. ENDOXAN [Suspect]
     Indication: DERMATOMYOSITIS
     Route: 042
     Dates: start: 20060418, end: 20060421
  11. TEGELINE [Suspect]
     Indication: DERMATOMYOSITIS
     Dosage: 20 G DAILY FOR 2 DAYS/MONTH
     Route: 042
     Dates: start: 20051001, end: 20060505

REACTIONS (23)
  - ALANINE AMINOTRANSFERASE INCREASED [None]
  - ANURIA [None]
  - ASPARTATE AMINOTRANSFERASE INCREASED [None]
  - C-REACTIVE PROTEIN INCREASED [None]
  - CALCULUS URINARY [None]
  - CHILLS [None]
  - CYTOLYTIC HEPATITIS [None]
  - DIARRHOEA [None]
  - DYSURIA [None]
  - FACE OEDEMA [None]
  - GASTROINTESTINAL HAEMORRHAGE [None]
  - HAEMOGLOBIN DECREASED [None]
  - HEPATIC STEATOSIS [None]
  - HEPATOMEGALY [None]
  - HYPONATRAEMIA [None]
  - LEUKOCYTOSIS [None]
  - NEUTROPHIL COUNT INCREASED [None]
  - OEDEMA PERIPHERAL [None]
  - PERITONEAL EFFUSION [None]
  - PLATELET COUNT INCREASED [None]
  - PULMONARY HAEMORRHAGE [None]
  - PYREXIA [None]
  - SEPSIS [None]
